FAERS Safety Report 5714997-0 (Version None)
Quarter: 2008Q2

REPORT INFORMATION
  Report Type: 
  Country: None (occurrence: None)
  Receive Date: 20080423
  Receipt Date: 20080411
  Transmission Date: 20081010
  Serious: Yes (Other)
  Sender: FDA-Public Use
  Company Number: AU-WYE-H03666408

PATIENT
  Age: 79 Year
  Sex: Female

DRUGS (2)
  1. PANTOPRAZOLE SODIUM [Suspect]
     Indication: DYSPEPSIA
     Dosage: UNKNOWN
  2. DECA-DURABOL [Concomitant]
     Indication: OSTEOPOROSIS
     Dosage: ^DF^
     Route: 030
     Dates: end: 20071003

REACTIONS (2)
  - HIRSUTISM [None]
  - RASH [None]
